FAERS Safety Report 4407218-2 (Version None)
Quarter: 2004Q3

REPORT INFORMATION
  Report Type: 
  Country: None (occurrence: None)
  Receive Date: 20040723
  Receipt Date: 20040723
  Transmission Date: 20050211
  Serious: Yes (Disabling, Other)
  Sender: FDA-Public Use
  Company Number: None

PATIENT
  Age: 55 Year
  Sex: Male
  Weight: 84.8226 kg

DRUGS (10)
  1. HYDROCHLOROTHIAZIDE [Suspect]
     Indication: BLOOD PRESSURE INCREASED
     Dosage: 1 DAILY ORAL
     Route: 048
     Dates: start: 20040402, end: 20040709
  2. PROPRANOLOL HCL [Concomitant]
  3. CELECOXIB [Concomitant]
  4. LORATADINE [Concomitant]
  5. OMEPRAZOLE [Concomitant]
  6. PEZIL [Concomitant]
  7. CALCIUM [Concomitant]
  8. CARBIDOPA AND LEVODOPA [Concomitant]
  9. LEVOTHYROXINE SODIUM [Concomitant]
  10. ASPERIN [Concomitant]

REACTIONS (5)
  - BLOOD PRESSURE SYSTOLIC DECREASED [None]
  - CONDITION AGGRAVATED [None]
  - DIZZINESS [None]
  - GENERAL PHYSICAL HEALTH DETERIORATION [None]
  - TREMOR [None]
